FAERS Safety Report 13568414 (Version 2)
Quarter: 2017Q3

REPORT INFORMATION
  Report Type: Report from Study
  Country: US (occurrence: US)
  Receive Date: 20170522
  Receipt Date: 20170809
  Transmission Date: 20171127
  Serious: Yes (Hospitalization, Other)
  Sender: FDA-Public Use
  Company Number: US-JNJFOC-20170518450

PATIENT
  Age: 78 Year
  Sex: Male

DRUGS (5)
  1. TRAZODONE [Concomitant]
     Active Substance: TRAZODONE HYDROCHLORIDE
  2. IMBRUVICA [Suspect]
     Active Substance: IBRUTINIB
     Indication: CHRONIC LYMPHOCYTIC LEUKAEMIA
     Route: 048
     Dates: start: 201612, end: 201705
  3. COENZYME Q10 [Concomitant]
     Active Substance: UBIDECARENONE
  4. SIMVASTATIN. [Concomitant]
     Active Substance: SIMVASTATIN
  5. LEXAPRO [Concomitant]
     Active Substance: ESCITALOPRAM OXALATE

REACTIONS (5)
  - Splenic haemorrhage [Recovered/Resolved with Sequelae]
  - Head injury [Recovered/Resolved]
  - Orthostatic hypotension [Unknown]
  - Subarachnoid haemorrhage [Unknown]
  - Splenic rupture [Recovered/Resolved with Sequelae]

NARRATIVE: CASE EVENT DATE: 20170501
